FAERS Safety Report 7069025-4 (Version None)
Quarter: 2010Q4

REPORT INFORMATION
  Report Type: 
  Country: None (occurrence: None)
  Receive Date: 20101020
  Receipt Date: 20101006
  Transmission Date: 20110411
  Serious: Yes (Hospitalization)
  Sender: FDA-Public Use
  Company Number: 2010MA003451

PATIENT
  Age: 50 Year
  Sex: Female

DRUGS (2)
  1. CITALOPRAM HYDROBROMIDE [Suspect]
     Indication: MAJOR DEPRESSION
  2. FENTANYL TRANSDERMAL SYSTEM, 100 MCG/HOUR (ASALLC) (FENTANYL) [Suspect]
     Indication: PAIN

REACTIONS (3)
  - CONVULSION [None]
  - HYPOTENSION [None]
  - SEROTONIN SYNDROME [None]
